FAERS Safety Report 7785789-6 (Version None)
Quarter: 2011Q3

REPORT INFORMATION
  Report Type: 
  Country: None (occurrence: None)
  Receive Date: 20110929
  Receipt Date: 20110926
  Transmission Date: 20111222
  Serious: Yes (Hospitalization)
  Sender: FDA-Public Use
  Company Number: US-BRISTOL-MYERS SQUIBB COMPANY-13927702

PATIENT
  Age: 53 Year
  Sex: Female
  Weight: 111 kg

DRUGS (12)
  1. MAGNESIUM OXIDE [Concomitant]
  2. PREVACID [Concomitant]
     Route: 048
  3. PROCHLORPERAZINE [Concomitant]
     Indication: VOMITING
  4. SENNA-MINT WAF [Concomitant]
  5. ULCEREASE [Concomitant]
  6. LEXAPRO [Concomitant]
  7. HYDROCODONE BITARTRATE AND ACETAMINOPHEN [Concomitant]
     Indication: PAIN
     Dosage: 1DF:5/500 MG
  8. ONDANSETRON HCL [Concomitant]
  9. ESTROGENIC SUBSTANCE [Concomitant]
     Dosage: 1DF:2-4 GRAMS DAILY CREAM
  10. MICARDIS HCT [Concomitant]
     Dosage: 1DF:40/12.5 MG
  11. FENTANYL [Concomitant]
     Indication: PAIN
  12. CISPLATIN [Suspect]
     Indication: HEAD AND NECK CANCER
     Dates: start: 20070807, end: 20070829

REACTIONS (5)
  - DERMATITIS [None]
  - FEBRILE NEUTROPENIA [None]
  - URINARY TRACT INFECTION [None]
  - STOMATITIS [None]
  - ANAEMIA [None]
